FAERS Safety Report 21463718 (Version 2)
Quarter: 2024Q3

REPORT INFORMATION
  Report Type: Spontaneous
  Country: US (occurrence: US)
  Receive Date: 20221017
  Receipt Date: 20240801
  Transmission Date: 20241016
  Serious: No
  Sender: SANOFI AVENTIS
  Company Number: US-SA-SAC20221013001740

PATIENT
  Age: 45 Year
  Sex: Female

DRUGS (1)
  1. DUPIXENT [Suspect]
     Active Substance: DUPILUMAB
     Indication: Asthma
     Dosage: 300 MG, QOW
     Route: 058
     Dates: start: 20210428

REACTIONS (3)
  - Diarrhoea [Unknown]
  - Abdominal discomfort [Unknown]
  - Faeces soft [Unknown]

NARRATIVE: CASE EVENT DATE: 20220401
